FAERS Safety Report 5276720-6 (Version None)
Quarter: 2007Q1

REPORT INFORMATION
  Report Type: 
  Country: None (occurrence: None)
  Receive Date: 20070327
  Receipt Date: 20070313
  Transmission Date: 20070707
  Serious: Yes (Hospitalization, Other)
  Sender: FDA-Public Use
  Company Number: FR-BAYER-200710206BFR

PATIENT
  Age: 88 Year
  Sex: Male
  Weight: 53 kg

DRUGS (3)
  1. SORAFENIB [Suspect]
     Indication: RENAL CELL CARCINOMA STAGE UNSPECIFIED
     Route: 048
  2. ACTISKENAN [Concomitant]
     Indication: CANCER PAIN
     Dosage: UNIT DOSE: 10 MG
     Route: 048
     Dates: start: 20060101
  3. ACTISKENAN [Concomitant]
     Route: 048
     Dates: start: 20060101

REACTIONS (5)
  - ABDOMINAL PAIN [None]
  - GENERAL PHYSICAL HEALTH DETERIORATION [None]
  - HYPOTENSION [None]
  - PYREXIA [None]
  - SEPSIS [None]
